FAERS Safety Report 4664516-5 (Version None)
Quarter: 2005Q2

REPORT INFORMATION
  Report Type: 
  Country: None (occurrence: None)
  Receive Date: 20050518
  Receipt Date: 20050203
  Transmission Date: 20051028
  Serious: No
  Sender: FDA-Public Use
  Company Number: JP-BOEHRINGER INGELHEIM PHARMACEUTICALS, INC.-2005-BP-02467NB

PATIENT
  Age: 76 Year
  Sex: Male

DRUGS (1)
  1. SPIRIVA CAPSULES [Suspect]
     Indication: TUBERCULOSIS
     Route: 055
     Dates: start: 20041217, end: 20050126

REACTIONS (3)
  - DYSPHONIA [None]
  - PHARYNGEAL OEDEMA [None]
  - THROAT IRRITATION [None]
